FAERS Safety Report 11764109 (Version 1)
Quarter: 2015Q4

REPORT INFORMATION
  Report Type: Spontaneous
  Country: US (occurrence: US)
  Receive Date: 20151120
  Receipt Date: 20151120
  Transmission Date: 20160304
  Serious: No
  Sender: FDA-Public Use
  Company Number: US-ELI_LILLY_AND_COMPANY-US201305002362

PATIENT
  Sex: Female

DRUGS (1)
  1. FORTEO [Suspect]
     Active Substance: TERIPARATIDE
     Indication: OSTEOPOROSIS
     Dosage: UNK, QD
     Route: 065
     Dates: start: 20130307

REACTIONS (9)
  - Head discomfort [Unknown]
  - Skin hypertrophy [Unknown]
  - Burning sensation [Unknown]
  - Headache [Unknown]
  - Erythema [Unknown]
  - Back pain [Unknown]
  - Pain [Unknown]
  - Dry skin [Unknown]
  - Arthralgia [Unknown]
